FAERS Safety Report 5615959-4 (Version None)
Quarter: 2008Q1

REPORT INFORMATION
  Report Type: 
  Country: None (occurrence: None)
  Receive Date: 20080206
  Receipt Date: 20080204
  Transmission Date: 20080703
  Serious: Yes (Hospitalization)
  Sender: FDA-Public Use
  Company Number: US-BOEHRINGER INGELHEIM GMBH, GERMANY-2008-BP-01650RO

PATIENT
  Age: 50 Year
  Sex: Male
  Weight: 70 kg

DRUGS (11)
  1. MIDAZOLAM HCL [Suspect]
     Indication: SEDATION
  2. LIDOCAINE [Suspect]
     Indication: NERVE BLOCK
  3. BUPIVACAINE [Suspect]
     Indication: NERVE BLOCK
  4. FENTANYL [Suspect]
     Indication: SEDATION
  5. PROPOFOL [Suspect]
     Indication: SEDATION
  6. ATENOLOL [Concomitant]
  7. PROPYLTHIOURACIL [Concomitant]
  8. WARFARIN SODIUM [Concomitant]
  9. CEFAZOLIN [Concomitant]
     Indication: ANTIBIOTIC PROPHYLAXIS
  10. DIPHENHYDRAMINE HCL [Concomitant]
     Indication: PALATAL OEDEMA
     Route: 042
  11. DEXAMETHASONE TAB [Concomitant]
     Indication: PALATAL OEDEMA
     Route: 042

REACTIONS (1)
  - PALATAL OEDEMA [None]
